FAERS Safety Report 17170534 (Version 3)
Quarter: 2020Q1

REPORT INFORMATION
  Report Type: Spontaneous
  Country: JP (occurrence: JP)
  Receive Date: 20191218
  Receipt Date: 20200131
  Transmission Date: 20200409
  Serious: Yes (Death)
  Sender: FDA-Public Use
  Company Number: JP-ROCHE-2501673

PATIENT
  Age: 70 Year
  Sex: Female
  Weight: 40 kg

DRUGS (2)
  1. PACLITAXEL. [Suspect]
     Active Substance: PACLITAXEL
     Indication: BREAST CANCER
     Route: 041
     Dates: start: 20191113, end: 20191127
  2. AVASTIN [Suspect]
     Active Substance: BEVACIZUMAB
     Indication: BREAST CANCER
     Route: 041
     Dates: start: 20191113, end: 20191127

REACTIONS (4)
  - Infectious pleural effusion [Fatal]
  - Sepsis [Fatal]
  - Impaired healing [Fatal]
  - Breast cancer [Fatal]

NARRATIVE: CASE EVENT DATE: 20191121
